FAERS Safety Report 8179424-5 (Version None)
Quarter: 2012Q1

REPORT INFORMATION
  Report Type: 
  Country: None (occurrence: None)
  Receive Date: 20120302
  Receipt Date: 20120227
  Transmission Date: 20120608
  Serious: Yes (Death)
  Sender: FDA-Public Use
  Company Number: CHPA2012US003763

PATIENT
  Age: 57 Year
  Sex: Female

DRUGS (9)
  1. DILTIAZEM HCL [Suspect]
     Dosage: UNK,UNK
     Route: 048
  2. DIPHENHYDRAMINE HCL [Suspect]
     Dosage: UNK,UNK
     Route: 048
  3. FLUOXETINE [Suspect]
     Dosage: UNK,UNK
     Route: 048
  4. METHOTREXATE [Suspect]
     Dosage: UNK,UNK
     Route: 048
  5. CLONAZEPAM [Suspect]
     Dosage: UNK,UNK
     Route: 048
  6. BACLOFEN [Suspect]
     Dosage: UNK,UNK
     Route: 048
  7. ANTIMALARIALS [Suspect]
     Dosage: UNK,UNK
     Route: 048
  8. VENLAFAXINE [Suspect]
     Dosage: UNK,UNK
     Route: 048
  9. GABAPENTIN [Suspect]
     Dosage: UNK,UNK
     Route: 048

REACTIONS (1)
  - COMPLETED SUICIDE [None]
